FAERS Safety Report 21319630 (Version 2)
Quarter: 2022Q4

REPORT INFORMATION
  Report Type: Spontaneous
  Country: US (occurrence: US)
  Receive Date: 20220911
  Receipt Date: 20221201
  Transmission Date: 20230113
  Serious: No
  Sender: FDA-Public Use
  Company Number: US-SA-SAC20220902000616

PATIENT
  Age: 48 Year
  Sex: Female

DRUGS (1)
  1. DUPIXENT [Suspect]
     Active Substance: DUPILUMAB
     Dosage: 300 MG
     Route: 058

REACTIONS (6)
  - Injection site pain [Unknown]
  - Visual impairment [Unknown]
  - Vision blurred [Unknown]
  - Ocular hyperaemia [Unknown]
  - Dry eye [Unknown]
  - Product preparation error [Unknown]
